FAERS Safety Report 7961475-4 (Version None)
Quarter: 2011Q4

REPORT INFORMATION
  Report Type: 
  Country: None (occurrence: None)
  Receive Date: 20111207
  Receipt Date: 20111127
  Transmission Date: 20120403
  Serious: Yes (Hospitalization, Other)
  Sender: FDA-Public Use
  Company Number: BR-SANOFI-AVENTIS-2011SA078247

PATIENT
  Age: 74 Year
  Sex: Male

DRUGS (1)
  1. LANTUS [Suspect]
     Route: 065

REACTIONS (4)
  - INTESTINAL RESECTION [None]
  - HYPOGLYCAEMIA [None]
  - ACCIDENT [None]
  - HAEMORRHAGE [None]
